FAERS Safety Report 9635004 (Version 6)
Quarter: 2015Q3

REPORT INFORMATION
  Report Type: Report from Study
  Country: BR (occurrence: BR)
  Receive Date: 20131021
  Receipt Date: 20150727
  Transmission Date: 20151125
  Serious: Yes (Other)
  Sender: FDA-Public Use
  Company Number: BR-ROCHE-1290515

PATIENT
  Sex: Female
  Weight: 73 kg

DRUGS (13)
  1. XOLAIR [Suspect]
     Active Substance: OMALIZUMAB
     Indication: ASTHMA
     Dosage: ONE AMPOULE EVERY 4 WEEKS
     Route: 065
     Dates: start: 20131008
  2. PREDNISONE. [Concomitant]
     Active Substance: PREDNISONE
     Route: 065
  3. XOLAIR [Suspect]
     Active Substance: OMALIZUMAB
     Dosage: ONE AMPOULE FOR EVERY 30 DAYS
     Route: 065
     Dates: start: 20131003
  4. XOLAIR [Suspect]
     Active Substance: OMALIZUMAB
     Route: 058
  5. BUSONID [Concomitant]
     Active Substance: BUDESONIDE
     Route: 065
  6. BUSONID [Concomitant]
     Active Substance: BUDESONIDE
     Route: 065
  7. ALENIA (BRAZIL) [Concomitant]
     Active Substance: BUDESONIDE\FORMOTEROL FUMARATE
     Route: 065
     Dates: start: 201302
  8. ACETYLSALICYLIC ACID [Concomitant]
     Active Substance: ASPIRIN
     Route: 065
  9. BUSONID [Concomitant]
     Active Substance: BUDESONIDE
     Route: 065
     Dates: start: 201302
  10. ALENDRONATE [Concomitant]
     Active Substance: ALENDRONATE SODIUM
     Route: 065
  11. DIOSMIN [Concomitant]
     Active Substance: DIOSMIN
     Route: 065
  12. ALENIA (BRAZIL) [Concomitant]
     Active Substance: BUDESONIDE\FORMOTEROL FUMARATE
     Route: 065
  13. ALENIA (BRAZIL) [Concomitant]
     Active Substance: BUDESONIDE\FORMOTEROL FUMARATE
     Route: 065

REACTIONS (8)
  - Drug ineffective [Unknown]
  - Varicose vein [Not Recovered/Not Resolved]
  - Throat irritation [Not Recovered/Not Resolved]
  - Hypokinesia [Not Recovered/Not Resolved]
  - Cough [Not Recovered/Not Resolved]
  - Arthralgia [Not Recovered/Not Resolved]
  - Rheumatic disorder [Not Recovered/Not Resolved]
  - Asthma [Recovering/Resolving]
